FAERS Safety Report 6301051-2 (Version None)
Quarter: 2009Q3

REPORT INFORMATION
  Report Type: 
  Country: None (occurrence: None)
  Receive Date: 20090807
  Receipt Date: 20070905
  Transmission Date: 20100115
  Serious: Yes (Hospitalization)
  Sender: FDA-Public Use
  Company Number: US-ASTRAZENECA-2006UW08438

PATIENT
  Age: 47 Year
  Sex: Male
  Weight: 108.9 kg

DRUGS (20)
  1. SEROQUEL [Suspect]
     Indication: BIPOLAR DISORDER
     Route: 048
     Dates: start: 20030807
  2. SEROQUEL [Suspect]
     Indication: DEPRESSION
     Route: 048
     Dates: start: 20030807
  3. SEROQUEL [Suspect]
     Indication: SCHIZOPHRENIA
     Route: 048
     Dates: start: 20030807
  4. SEROQUEL [Suspect]
     Dosage: 200-300 MG
     Route: 048
     Dates: start: 20040101
  5. SEROQUEL [Suspect]
     Dosage: 200-300 MG
     Route: 048
     Dates: start: 20040101
  6. SEROQUEL [Suspect]
     Dosage: 200-300 MG
     Route: 048
     Dates: start: 20040101
  7. SEROQUEL [Suspect]
     Dosage: 50 MG AT MORNING, 50 MG AT NOON AND 300 MG AT NIGHT
     Route: 048
     Dates: start: 20040704
  8. SEROQUEL [Suspect]
     Dosage: 50 MG AT MORNING, 50 MG AT NOON AND 300 MG AT NIGHT
     Route: 048
     Dates: start: 20040704
  9. SEROQUEL [Suspect]
     Dosage: 50 MG AT MORNING, 50 MG AT NOON AND 300 MG AT NIGHT
     Route: 048
     Dates: start: 20040704
  10. SEROQUEL [Suspect]
     Route: 048
     Dates: start: 20041115
  11. SEROQUEL [Suspect]
     Route: 048
     Dates: start: 20041115
  12. SEROQUEL [Suspect]
     Route: 048
     Dates: start: 20041115
  13. ABILIFY [Concomitant]
     Route: 048
     Dates: start: 20030521
  14. ZYPREXA [Concomitant]
  15. DOXEPIN HCL [Concomitant]
  16. DEPAKOTE [Concomitant]
     Route: 048
     Dates: start: 20021205
  17. EFFEXOR [Concomitant]
     Route: 048
     Dates: start: 20030521
  18. SINEQUAN [Concomitant]
     Dosage: 50 MG-450 MG
     Route: 048
     Dates: start: 20021205
  19. GLUCOPHAGE [Concomitant]
     Route: 048
     Dates: start: 20040804
  20. THORAZINE [Concomitant]
     Route: 048
     Dates: start: 20040704

REACTIONS (5)
  - DIABETES MELLITUS [None]
  - DIABETES MELLITUS INADEQUATE CONTROL [None]
  - DIABETIC COMPLICATION [None]
  - METABOLIC SYNDROME [None]
  - TYPE 2 DIABETES MELLITUS [None]
